FAERS Safety Report 15259313 (Version 1)
Quarter: 2018Q4

REPORT INFORMATION
  Report Type: Spontaneous
  Country: FR (occurrence: FR)
  Receive Date: 20180809
  Receipt Date: 20180809
  Transmission Date: 20190204
  Serious: Yes (Hospitalization)
  Sender: FDA-Public Use
  Company Number: FR-JNJFOC-20180808311

PATIENT
  Age: 76 Year
  Sex: Male

DRUGS (14)
  1. DICLOFENAC [Concomitant]
     Active Substance: DICLOFENAC
     Route: 003
  2. PREGABALINE [Concomitant]
     Active Substance: PREGABALIN
     Route: 048
  3. ALLOPURINOL. [Concomitant]
     Active Substance: ALLOPURINOL
     Route: 048
  4. ZOPICLONE [Concomitant]
     Active Substance: ZOPICLONE
     Route: 048
  5. PANTOPRAZOLE [Concomitant]
     Active Substance: PANTOPRAZOLE
     Route: 048
  6. ALFUZOSINE [Concomitant]
     Active Substance: ALFUZOSIN HYDROCHLORIDE
     Route: 048
  7. RISPERDAL [Suspect]
     Active Substance: RISPERIDONE
     Indication: AGGRESSION
     Route: 048
     Dates: start: 20180210, end: 20180212
  8. LOXAPAC [Suspect]
     Active Substance: LOXAPINE
     Indication: AGGRESSION
     Route: 048
     Dates: start: 20180209, end: 20180209
  9. FUROSEMIDE. [Concomitant]
     Active Substance: FUROSEMIDE
     Route: 048
  10. PREDNISONE. [Concomitant]
     Active Substance: PREDNISONE
     Route: 048
  11. TEMESTA (LORAZEPAM) [Suspect]
     Active Substance: LORAZEPAM
     Indication: AGGRESSION
     Route: 048
     Dates: start: 20180209, end: 20180212
  12. DIFFU K [Concomitant]
     Active Substance: POTASSIUM CHLORIDE
     Route: 048
  13. FLUINDIONE [Concomitant]
     Active Substance: FLUINDIONE
     Route: 048
  14. LEVOTHYROX [Concomitant]
     Active Substance: LEVOTHYROXINE
     Route: 048

REACTIONS (2)
  - Confusional state [Recovered/Resolved]
  - Hallucination [Recovered/Resolved]

NARRATIVE: CASE EVENT DATE: 20180210
